FAERS Safety Report 19126794 (Version 1)
Quarter: 2021Q2

REPORT INFORMATION
  Report Type: Spontaneous
  Country: GB (occurrence: GB)
  Receive Date: 20210413
  Receipt Date: 20210413
  Transmission Date: 20210717
  Serious: Yes (Other)
  Sender: FDA-Public Use
  Company Number: GB-ACCORD-222335

PATIENT
  Age: 85 Year
  Sex: Female
  Weight: 57 kg

DRUGS (4)
  1. BENDROFLUMETHIAZIDE [Concomitant]
     Active Substance: BENDROFLUMETHIAZIDE
     Dosage: IN THE MORNING
     Dates: start: 20200107
  2. LOSARTAN. [Concomitant]
     Active Substance: LOSARTAN
     Dates: start: 20210329
  3. RAMIPRIL. [Suspect]
     Active Substance: RAMIPRIL
     Indication: PRODUCT USED FOR UNKNOWN INDICATION
     Dates: start: 20210322
  4. HYPROMELLOSE/HYPROMELLOSE PHTHALATE [Concomitant]
     Active Substance: HYPROMELLOSE PHTHALATE\HYPROMELLOSES
     Indication: DRY EYE
     Dates: start: 20200107

REACTIONS (5)
  - Vision blurred [Recovering/Resolving]
  - Balance disorder [Unknown]
  - Depression [Unknown]
  - Nausea [Unknown]
  - Feeling jittery [Unknown]

NARRATIVE: CASE EVENT DATE: 20210329
